FAERS Safety Report 9882599 (Version 2)
Quarter: 2014Q1

REPORT INFORMATION
  Report Type: Spontaneous
  Country: FR (occurrence: FR)
  Receive Date: 20140207
  Receipt Date: 20140213
  Transmission Date: 20141002
  Serious: Yes (Other)
  Sender: FDA-Public Use
  Company Number: FR-ABBVIE-14P-056-1198411-00

PATIENT
  Age: 18 Month
  Sex: Female

DRUGS (5)
  1. DEPAKINE [Suspect]
     Indication: CONVULSION
     Route: 065
     Dates: start: 20140126, end: 20140127
  2. DEPAKINE [Suspect]
     Route: 065
     Dates: start: 20140128, end: 20140129
  3. DEPAKINE [Suspect]
     Route: 065
     Dates: start: 20140130
  4. DEPAKINE [Suspect]
  5. RIVOTRIL [Suspect]
     Indication: CONVULSION
     Route: 048

REACTIONS (3)
  - Condition aggravated [Unknown]
  - Convulsion [Unknown]
  - Drug ineffective [Unknown]
